FAERS Safety Report 6195406-7 (Version None)
Quarter: 2009Q2

REPORT INFORMATION
  Report Type: 
  Country: None (occurrence: None)
  Receive Date: 20090519
  Receipt Date: 20090504
  Transmission Date: 20091009
  Serious: Yes (Other)
  Sender: FDA-Public Use
  Company Number: IR-GENENTECH-282996

PATIENT

DRUGS (1)
  1. MABTHERA [Suspect]
     Indication: IDIOPATHIC THROMBOCYTOPENIC PURPURA
     Dosage: 2000 MG, Q2W
     Route: 042

REACTIONS (1)
  - OEDEMA PERIPHERAL [None]
